FAERS Safety Report 6919096-8 (Version None)
Quarter: 2010Q3

REPORT INFORMATION
  Report Type: 
  Country: None (occurrence: None)
  Receive Date: 20100727
  Receipt Date: 20080515
  Transmission Date: 20110219
  Serious: No
  Sender: FDA-Public Use
  Company Number: CAR-2008-020

PATIENT
  Age: 75 Year
  Sex: Male

DRUGS (1)
  1. CARAFATE [Suspect]
     Indication: GASTRIC ULCER
     Dosage: 10 ML, TID TO QID, ORAL
     Route: 048
     Dates: start: 20080401

REACTIONS (1)
  - BLOOD GLUCOSE INCREASED [None]
